FAERS Safety Report 7895102-1 (Version None)
Quarter: 2011Q4

REPORT INFORMATION
  Report Type: 
  Country: None (occurrence: None)
  Receive Date: 20111106
  Receipt Date: 20110823
  Transmission Date: 20120403
  Serious: No
  Sender: FDA-Public Use
  Company Number: US-AMGEN-USASP2011043017

PATIENT
  Age: 54 Year
  Sex: Female

DRUGS (1)
  1. ENBREL [Suspect]
     Indication: RHEUMATOID ARTHRITIS
     Dates: start: 20090301

REACTIONS (8)
  - SEASONAL ALLERGY [None]
  - SINUSITIS [None]
  - PRURITUS [None]
  - ERYTHEMA [None]
  - INJECTION SITE SWELLING [None]
  - EPISTAXIS [None]
  - SWELLING [None]
  - WEIGHT INCREASED [None]
